FAERS Safety Report 19706024 (Version 1)
Quarter: 2021Q3

REPORT INFORMATION
  Report Type: Report from Study
  Country: None (occurrence: US)
  Receive Date: 20210817
  Receipt Date: 20210817
  Transmission Date: 20211014
  Serious: Yes (Other)
  Sender: FDA-Public Use
  Company Number: US-ABBVIE-21K-163-4037503-00

PATIENT
  Age: 76 Year
  Sex: Male

DRUGS (2)
  1. VENCLEXTA [Suspect]
     Active Substance: VENETOCLAX
     Indication: CHRONIC LYMPHOCYTIC LEUKAEMIA
     Route: 048
  2. VENCLEXTA [Suspect]
     Active Substance: VENETOCLAX
     Route: 048

REACTIONS (6)
  - Cognitive disorder [Unknown]
  - Eye operation [Unknown]
  - Musculoskeletal disorder [Unknown]
  - White blood cell count abnormal [Unknown]
  - Loss of personal independence in daily activities [Unknown]
  - Nail disorder [Unknown]

NARRATIVE: CASE EVENT DATE: 202105
